FAERS Safety Report 9358405 (Version 11)
Quarter: 2015Q4

REPORT INFORMATION
  Report Type: Report from Study
  Country: CA (occurrence: CA)
  Receive Date: 20130620
  Receipt Date: 20151209
  Transmission Date: 20160305
  Serious: Yes (Other)
  Sender: FDA-Public Use
  Company Number: CA-GLAXOSMITHKLINE-A1023123A

PATIENT
  Age: 57 Year
  Sex: Female
  Weight: 98 kg

DRUGS (3)
  1. BELIMUMAB [Suspect]
     Active Substance: BELIMUMAB
     Dosage: UNK
     Dates: start: 20130424
  2. BELIMUMAB [Suspect]
     Active Substance: BELIMUMAB
     Dosage: 1000 MG, UNK
  3. BELIMUMAB [Suspect]
     Active Substance: BELIMUMAB
     Indication: SYSTEMIC LUPUS ERYTHEMATOSUS
     Dosage: 1000 MG, Z, 0, 2, 4 WKS, Q4WKS
     Dates: start: 20130417

REACTIONS (12)
  - Headache [Recovered/Resolved]
  - Lower respiratory tract infection [Unknown]
  - Ear infection [Unknown]
  - Depression [Recovering/Resolving]
  - Malaise [Unknown]
  - Anxiety [Recovering/Resolving]
  - Dizziness [Recovered/Resolved]
  - Cough [Unknown]
  - Depressed mood [Not Recovered/Not Resolved]
  - Nausea [Recovered/Resolved]
  - Urinary tract infection [Unknown]
  - Depressive symptom [Recovered/Resolved]

NARRATIVE: CASE EVENT DATE: 20130417
